FAERS Safety Report 5888683-0 (Version None)
Quarter: 2008Q3

REPORT INFORMATION
  Report Type: 
  Country: None (occurrence: None)
  Receive Date: 20080917
  Receipt Date: 20080708
  Transmission Date: 20090109
  Serious: Yes (Death)
  Sender: FDA-Public Use
  Company Number: 000590

PATIENT
  Age: 47 Year
  Sex: Male

DRUGS (6)
  1. BUSULFEX [Suspect]
     Indication: STEM CELL TRANSPLANT
     Dosage: 29 MI, INTRAVENOUS
     Route: 042
     Dates: start: 20070413, end: 20070416
  2. CYCLOPHOSPHAMIDE [Concomitant]
  3. VALPROATE SODIUM [Concomitant]
  4. FILGRASTIM (FILGRASTIM) [Concomitant]
  5. METHOTREXATE [Concomitant]
  6. CYCLOSPORINE [Concomitant]

REACTIONS (3)
  - ADULT T-CELL LYMPHOMA/LEUKAEMIA RECURRENT [None]
  - COAGULATION FACTOR XIII LEVEL DECREASED [None]
  - MALLORY-WEISS SYNDROME [None]
